FAERS Safety Report 12821163 (Version 2)
Quarter: 2016Q4

REPORT INFORMATION
  Report Type: Report from Study
  Country: RU (occurrence: RU)
  Receive Date: 20161006
  Receipt Date: 20161202
  Transmission Date: 20170207
  Serious: Yes (Hospitalization, Other)
  Sender: FDA-Public Use
  Company Number: RU-B.I. PHARMACEUTICALS,INC./RIDGEFIELD-2016-BI-24441BI

PATIENT
  Age: 67 Year
  Sex: Male
  Weight: 81 kg

DRUGS (5)
  1. PENTOXYPHYLLIN [Concomitant]
     Indication: ENCEPHALOPATHY
     Route: 042
     Dates: start: 20160711, end: 20160729
  2. KETOROLAK [Concomitant]
     Indication: PAIN
     Route: 030
     Dates: start: 20160711, end: 20160729
  3. IMATINIB [Concomitant]
     Active Substance: IMATINIB
     Indication: MYELOFIBROSIS
     Route: 048
     Dates: start: 20160221
  4. BLINDED TIOTROPIUM BROMIDE+OLODATEROL [Suspect]
     Active Substance: OLODATEROL HYDROCHLORIDE\TIOTROPIUM BROMIDE MONOHYDRATE
     Indication: CHRONIC OBSTRUCTIVE PULMONARY DISEASE
     Route: 055
     Dates: start: 20160408
  5. CEFTRIAXONE. [Concomitant]
     Active Substance: CEFTRIAXONE
     Indication: PROPHYLAXIS
     Route: 042
     Dates: start: 20160711, end: 20160729

REACTIONS (7)
  - Pain [Recovered/Resolved]
  - Radiculopathy [Not Recovered/Not Resolved]
  - Monoparesis [Not Recovered/Not Resolved]
  - Spondylolisthesis [Not Recovered/Not Resolved]
  - Osteoporosis [Not Recovered/Not Resolved]
  - Intervertebral disc protrusion [Not Recovered/Not Resolved]
  - Rib fracture [Unknown]

NARRATIVE: CASE EVENT DATE: 20160711
